FAERS Safety Report 4319990-0 (Version None)
Quarter: 2004Q1

REPORT INFORMATION
  Report Type: 
  Country: None (occurrence: None)
  Receive Date: 20040315
  Receipt Date: 20031211
  Transmission Date: 20041129
  Serious: No
  Sender: FDA-Public Use
  Company Number: 2003190281US

PATIENT
  Age: 80 Year
  Sex: Female

DRUGS (4)
  1. BEXTRA [Suspect]
     Indication: ARTHRITIS
     Dosage: 10 MG
     Dates: start: 20031210
  2. FOSAMAX [Concomitant]
  3. LIPITOR [Concomitant]
  4. CALTRATE D [Concomitant]

REACTIONS (1)
  - HOARSENESS [None]
